FAERS Safety Report 7029635-7 (Version None)
Quarter: 2010Q4

REPORT INFORMATION
  Report Type: 
  Country: None (occurrence: None)
  Receive Date: 20101005
  Receipt Date: 20101001
  Transmission Date: 20110411
  Serious: Yes (Hospitalization, Disabling, Other)
  Sender: FDA-Public Use
  Company Number: US-MERCK-0902USA00395

PATIENT
  Age: 56 Year
  Sex: Female
  Weight: 76 kg

DRUGS (3)
  1. FOSAMAX [Suspect]
     Indication: OSTEOPENIA
     Route: 048
     Dates: start: 20011127, end: 20070821
  2. LEVOXYL [Concomitant]
     Indication: THYROID DISORDER
     Route: 065
     Dates: start: 19880101
  3. EFFEXOR [Concomitant]
     Indication: ANXIETY
     Route: 065
     Dates: start: 19990101

REACTIONS (61)
  - ABDOMINAL PAIN UPPER [None]
  - ADVERSE DRUG REACTION [None]
  - BACK PAIN [None]
  - CELLULITIS [None]
  - COAGULOPATHY [None]
  - COCCYDYNIA [None]
  - CONTUSION [None]
  - DEEP VEIN THROMBOSIS [None]
  - DENTAL FISTULA [None]
  - DEPRESSION [None]
  - DIARRHOEA [None]
  - DRUG HYPERSENSITIVITY [None]
  - DRUG INEFFECTIVE [None]
  - DYSLIPIDAEMIA [None]
  - ECCHYMOSIS [None]
  - FALL [None]
  - GASTROINTESTINAL DISORDER [None]
  - GASTROOESOPHAGEAL REFLUX DISEASE [None]
  - GENERALISED ANXIETY DISORDER [None]
  - GINGIVAL BLEEDING [None]
  - HYPERLIPIDAEMIA [None]
  - HYPERTENSION [None]
  - INCISION SITE INFECTION [None]
  - INSOMNIA [None]
  - INTERVERTEBRAL DISC PROTRUSION [None]
  - IRON DEFICIENCY [None]
  - JAW DISORDER [None]
  - LABILE HYPERTENSION [None]
  - LABYRINTHITIS [None]
  - LUMBAR RADICULOPATHY [None]
  - LUPUS-LIKE SYNDROME [None]
  - LYMPHADENOPATHY [None]
  - MUSCULOSKELETAL CHEST PAIN [None]
  - MUSCULOSKELETAL PAIN [None]
  - MYOCARDIAL ISCHAEMIA [None]
  - NECK INJURY [None]
  - NECK PAIN [None]
  - NEUROPATHY PERIPHERAL [None]
  - OBESITY [None]
  - OESOPHAGEAL ULCER [None]
  - ORAL DISORDER [None]
  - ORAL TORUS [None]
  - OSTEOMYELITIS [None]
  - OSTEONECROSIS OF JAW [None]
  - PALPITATIONS [None]
  - PLATELET DISORDER [None]
  - PRESYNCOPE [None]
  - RADICULOPATHY [None]
  - RESTLESS LEGS SYNDROME [None]
  - RETINAL HAEMORRHAGE [None]
  - ROTATOR CUFF SYNDROME [None]
  - SCIATICA [None]
  - SPINAL DISORDER [None]
  - SPINAL OSTEOARTHRITIS [None]
  - SYNCOPE [None]
  - TENDONITIS [None]
  - TENSION HEADACHE [None]
  - TOOTH FRACTURE [None]
  - VERTIGO POSITIONAL [None]
  - WEIGHT INCREASED [None]
  - WEIGHT LOSS POOR [None]
